FAERS Safety Report 12192701 (Version 6)
Quarter: 2016Q2

REPORT INFORMATION
  Report Type: Report from Study
  Country: US (occurrence: US)
  Receive Date: 20160318
  Receipt Date: 20160510
  Transmission Date: 20160815
  Serious: Yes (Other)
  Sender: FDA-Public Use
  Company Number: US-AMGEN-USASL2016034088

PATIENT
  Age: 44 Year
  Sex: Female

DRUGS (2)
  1. NAPROXEN. [Concomitant]
     Active Substance: NAPROXEN
     Dosage: UNK
  2. ENBREL [Suspect]
     Active Substance: ETANERCEPT
     Indication: PSORIATIC ARTHROPATHY
     Dosage: 50 MG, QWK
     Route: 065
     Dates: start: 20160316

REACTIONS (23)
  - Monoplegia [Unknown]
  - Paraesthesia [Unknown]
  - Dysstasia [Unknown]
  - Memory impairment [Unknown]
  - Impaired driving ability [Unknown]
  - Device issue [Unknown]
  - Fear of injection [Unknown]
  - Peripheral swelling [Unknown]
  - Pain [Unknown]
  - Insomnia [Unknown]
  - Nervousness [Unknown]
  - Muscular weakness [Unknown]
  - Apathy [Unknown]
  - Hypoaesthesia [Unknown]
  - Cough [Unknown]
  - Therapeutic response unexpected [Recovering/Resolving]
  - Lethargy [Unknown]
  - Constipation [Unknown]
  - Injection site pain [Recovered/Resolved]
  - Nausea [Unknown]
  - Abdominal pain upper [Unknown]
  - Urinary incontinence [Unknown]
  - Stress [Unknown]

NARRATIVE: CASE EVENT DATE: 2016
